FAERS Safety Report 11815963 (Version 1)
Quarter: 2015Q4

REPORT INFORMATION
  Report Type: Spontaneous
  Country: US (occurrence: US)
  Receive Date: 20151209
  Receipt Date: 20151209
  Transmission Date: 20160305
  Serious: Yes (Death)
  Sender: FDA-Public Use
  Company Number: US-PFIZER INC-2015426495

PATIENT
  Age: 55 Year
  Sex: Female

DRUGS (3)
  1. CYCLOBENZAPRINE [Suspect]
     Active Substance: CYCLOBENZAPRINE
  2. LORAZEPAM. [Suspect]
     Active Substance: LORAZEPAM
  3. MORPHINE SULFATE. [Suspect]
     Active Substance: MORPHINE SULFATE

REACTIONS (1)
  - Death [Fatal]

NARRATIVE: CASE EVENT DATE: 2014
